FAERS Safety Report 10349491 (Version 2)
Quarter: 2014Q3

REPORT INFORMATION
  Report Type: Spontaneous
  Country: GB (occurrence: None)
  Receive Date: 20140728
  Receipt Date: 20140812
  Transmission Date: 20150326
  Serious: Yes (Hospitalization, Other)
  Sender: FDA-Public Use
  Company Number: AUR-APL-2014-07918

PATIENT
  Age: 5 Decade
  Sex: Male
  Weight: 100 kg

DRUGS (11)
  1. MADOPAR (BENSERAZIDE HYDROCHLORIDE, LEVODOPA) [Concomitant]
  2. AMANTADINE  (AMANTADINE) [Concomitant]
  3. SALBUTAMOL (SALBUTAMOL) [Concomitant]
     Active Substance: ALBUTEROL
  4. SIMVASTATIN 20MG (SIMVASTATIN) UNKNOWN, 20MG [Suspect]
     Active Substance: SIMVASTATIN
     Indication: BLOOD CHOLESTEROL INCREASED
     Route: 048
     Dates: start: 2007
  5. CETIRIZINE (CETIRIZINE) [Concomitant]
     Active Substance: CETIRIZINE HYDROCHLORIDE
  6. RASAGILINE (RASAGILINE) [Concomitant]
  7. SELEGILINE (SELEGILINE) [Concomitant]
  8. SILDENAFIL (SILDENAFIL) [Concomitant]
     Active Substance: SILDENAFIL
  9. MELATONIN (MEATONIN) [Concomitant]
  10. ROPINIROLE (ROPINIROLE) [Concomitant]
     Active Substance: ROPINIROLE
  11. STALEVO (CARBIDOPA, ENTACAPONE, LEVODOPA) [Concomitant]

REACTIONS (16)
  - Memory impairment [None]
  - Gravitational oedema [None]
  - Epistaxis [None]
  - Chorioretinopathy [None]
  - Tinnitus [None]
  - Asthenia [None]
  - Rhinitis [None]
  - Neuropathy peripheral [None]
  - Stasis dermatitis [None]
  - Insomnia [None]
  - Deep vein thrombosis [None]
  - Skin exfoliation [None]
  - Visual impairment [None]
  - Peripheral swelling [None]
  - Fatigue [None]
  - Constipation [None]

NARRATIVE: CASE EVENT DATE: 2008
